FAERS Safety Report 8582942-9 (Version None)
Quarter: 2012Q3

REPORT INFORMATION
  Report Type: 
  Country: None (occurrence: None)
  Receive Date: 20120809
  Receipt Date: 20120731
  Transmission Date: 20120928
  Serious: Yes (Hospitalization)
  Sender: FDA-Public Use
  Company Number: US-JNJFOC-20111103047

PATIENT
  Sex: Male
  Weight: 61.6 kg

DRUGS (15)
  1. SOLU-MEDROL [Concomitant]
     Route: 042
  2. CHLORASEPTIC [Concomitant]
  3. BENADRYL [Concomitant]
  4. PHENOL [Concomitant]
  5. REMICADE [Suspect]
     Indication: INFLAMMATORY BOWEL DISEASE
     Route: 042
     Dates: start: 20051114, end: 20110201
  6. MESALAMINE [Concomitant]
     Indication: INFLAMMATORY BOWEL DISEASE
     Route: 048
  7. MARIJUANA [Concomitant]
  8. OPTIVAR [Concomitant]
  9. OXYCONTIN [Concomitant]
  10. ESOMEPRAZOLE [Concomitant]
  11. SUCRALFATE [Concomitant]
  12. PREDNISONE TAB [Concomitant]
  13. EPIDUO [Concomitant]
  14. BACTROBAN [Concomitant]
  15. PERCOCET [Concomitant]

REACTIONS (1)
  - ABDOMINAL PAIN [None]
